FAERS Safety Report 6343758-7 (Version None)
Quarter: 2009Q3

REPORT INFORMATION
  Report Type: 
  Country: None (occurrence: None)
  Receive Date: 20090908
  Receipt Date: 20090901
  Transmission Date: 20100115
  Serious: Yes (Other)
  Sender: FDA-Public Use
  Company Number: B0580522A

PATIENT
  Sex: Female

DRUGS (5)
  1. VALTREX [Suspect]
     Indication: ORAL HERPES
     Dosage: 500MG TWICE PER DAY
     Route: 048
     Dates: start: 20090323, end: 20090325
  2. TOWAMIN [Concomitant]
     Indication: HYPERTENSION
     Dosage: 50MG PER DAY
     Route: 048
  3. AMLODIPINE [Concomitant]
     Indication: HYPERTENSION
     Dosage: 2.5MG PER DAY
     Route: 048
  4. MERISLON [Concomitant]
     Indication: DIZZINESS
     Dosage: 6MG PER DAY
     Route: 048
  5. RIZE [Concomitant]
     Indication: INSOMNIA
     Dosage: 5MG PER DAY
     Route: 048

REACTIONS (3)
  - CHILLS [None]
  - CONVULSION [None]
  - VOMITING [None]
